FAERS Safety Report 7375783-1 (Version None)
Quarter: 2011Q1

REPORT INFORMATION
  Report Type: 
  Country: None (occurrence: None)
  Receive Date: 20110325
  Receipt Date: 20110316
  Transmission Date: 20110831
  Serious: Yes (Hospitalization)
  Sender: FDA-Public Use
  Company Number: A0751466A

PATIENT
  Age: 72 Year
  Sex: Male
  Weight: 120.5 kg

DRUGS (5)
  1. ZOCOR [Concomitant]
  2. LISINOPRIL [Concomitant]
  3. GLUCOPHAGE [Concomitant]
  4. AVANDIA [Suspect]
     Dosage: 4MG TWICE PER DAY
     Route: 048
     Dates: start: 20041129, end: 20070201
  5. NOVOLIN R [Concomitant]
     Dates: start: 19990101

REACTIONS (6)
  - ACUTE CORONARY SYNDROME [None]
  - AMNESIA [None]
  - ATRIAL FIBRILLATION [None]
  - WEIGHT INCREASED [None]
  - MYOCARDIAL INFARCTION [None]
  - NEPHROPATHY [None]
